FAERS Safety Report 9785138 (Version 1)
Quarter: 2013Q4

REPORT INFORMATION
  Report Type: Spontaneous
  Country: US (occurrence: US)
  Receive Date: 20131227
  Receipt Date: 20131227
  Transmission Date: 20140711
  Serious: Yes (Hospitalization)
  Sender: FDA-Public Use
  Company Number: US-JNJFOC-20131214123

PATIENT
  Age: 67 Year
  Sex: Male

DRUGS (14)
  1. FLEXERIL [Concomitant]
     Route: 065
  2. HCTZ [Concomitant]
     Route: 065
  3. XARELTO [Suspect]
     Indication: THROMBOSIS PROPHYLAXIS
     Route: 048
     Dates: start: 20121205, end: 20121212
  4. XARELTO [Suspect]
     Indication: KNEE ARTHROPLASTY
     Route: 048
     Dates: start: 20121205, end: 20121212
  5. VITAMIN D [Suspect]
     Indication: PRODUCT USED FOR UNKNOWN INDICATION
     Route: 065
  6. TROSPIUM [Suspect]
     Indication: PRODUCT USED FOR UNKNOWN INDICATION
     Route: 065
  7. RAPAFLO [Suspect]
     Indication: PRODUCT USED FOR UNKNOWN INDICATION
     Route: 065
  8. ASPIRIN [Suspect]
     Indication: PRODUCT USED FOR UNKNOWN INDICATION
     Route: 065
  9. METFORMIN [Concomitant]
     Route: 065
  10. BYSTOLIC [Concomitant]
     Route: 065
  11. LOSARTAN [Concomitant]
     Route: 065
  12. TRICOR [Concomitant]
     Route: 065
  13. CRESTOR [Concomitant]
     Route: 065
  14. DILTIAZEM [Concomitant]
     Route: 065

REACTIONS (2)
  - Pulmonary embolism [Unknown]
  - Heart rate increased [Unknown]
